FAERS Safety Report 6265225-1 (Version None)
Quarter: 2009Q3

REPORT INFORMATION
  Report Type: 
  Country: None (occurrence: None)
  Receive Date: 20090709
  Receipt Date: 20090709
  Transmission Date: 20100115
  Serious: No
  Sender: FDA-Public Use
  Company Number: None

PATIENT
  Age: 60 Year
  Sex: Female
  Weight: 117.9352 kg

DRUGS (1)
  1. CLINDAMYCIN [Suspect]
     Indication: TOOTH DISORDER
     Dosage: 300 MG 3 X A DAY MOUTH
     Route: 048
     Dates: start: 20090616, end: 20090626

REACTIONS (1)
  - DYSGEUSIA [None]
